FAERS Safety Report 21004250 (Version 1)
Quarter: 2022Q2

REPORT INFORMATION
  Report Type: Report from Study
  Country: KR (occurrence: KR)
  Receive Date: 20220624
  Receipt Date: 20220624
  Transmission Date: 20220720
  Serious: Yes (Hospitalization, Other)
  Sender: FDA-Public Use
  Company Number: KR-GLAXOSMITHKLINE-KR2022GSK097144

PATIENT

DRUGS (17)
  1. FLUTICASONE FUROATE\UMECLIDINIUM BROMIDE\VILANTEROL TRIFENATATE [Suspect]
     Active Substance: FLUTICASONE FUROATE\UMECLIDINIUM BROMIDE\VILANTEROL TRIFENATATE
     Indication: Chronic obstructive pulmonary disease
     Dosage: 1 QD
     Route: 055
     Dates: start: 20210820
  2. VENTOLIN [Concomitant]
     Active Substance: ALBUTEROL SULFATE
     Indication: Product used for unknown indication
     Dosage: 1 DF, QD
     Route: 055
     Dates: start: 20210113
  3. ASIMA TABLET [Concomitant]
     Indication: Product used for unknown indication
     Dosage: 1 DF, BID
     Route: 048
     Dates: start: 20210113
  4. VALIUM TABLET [Concomitant]
     Indication: Product used for unknown indication
     Dosage: 1 DF, QD
     Route: 048
     Dates: start: 20211130, end: 20211206
  5. TRAZODONE [Concomitant]
     Active Substance: TRAZODONE HYDROCHLORIDE
     Indication: Product used for unknown indication
     Dosage: 4 DF, QD
     Route: 048
     Dates: start: 20201204
  6. ATIVAN TABLET [Concomitant]
     Indication: Product used for unknown indication
     Dosage: 1 DF, TID
     Route: 048
     Dates: start: 20201204
  7. URSA TABLET [Concomitant]
     Indication: Product used for unknown indication
     Dosage: 1 DF, TID
     Route: 048
     Dates: start: 20211130
  8. ELDOTEIN [Concomitant]
     Indication: Product used for unknown indication
     Dosage: 1 DF, BID
     Route: 048
     Dates: start: 20201211
  9. CAROL-F TABLET [Concomitant]
     Indication: Product used for unknown indication
  10. ERDOLANT [Concomitant]
     Indication: Product used for unknown indication
  11. ESODUO [Concomitant]
     Indication: Product used for unknown indication
  12. LASIX [Concomitant]
     Active Substance: FUROSEMIDE
     Indication: Product used for unknown indication
  13. PHAZYME 95 TABLET [Concomitant]
     Indication: Product used for unknown indication
  14. SEROQUEL [Concomitant]
     Active Substance: QUETIAPINE FUMARATE
     Indication: Product used for unknown indication
  15. SYLCON TABLET [Concomitant]
     Indication: Product used for unknown indication
  16. ACETPHEN PREMIX [Concomitant]
     Indication: Product used for unknown indication
     Dosage: 1G/100ML/B
  17. THIAMINE [Concomitant]
     Active Substance: THIAMINE
     Indication: Product used for unknown indication

REACTIONS (1)
  - Pneumothorax spontaneous [Recovered/Resolved]

NARRATIVE: CASE EVENT DATE: 20220220
